FAERS Safety Report 21494485 (Version 1)
Quarter: 2022Q4

REPORT INFORMATION
  Report Type: Spontaneous
  Country: US (occurrence: US)
  Receive Date: 20221021
  Receipt Date: 20221021
  Transmission Date: 20230113
  Serious: Yes (Death, Life-Threatening, Other)
  Sender: FDA-Public Use
  Company Number: US-BRACCO-2022US00027

PATIENT
  Age: 62 Year
  Sex: Female

DRUGS (11)
  1. MULTIHANCE [Suspect]
     Active Substance: GADOBENATE DIMEGLUMINE
     Indication: Magnetic resonance imaging
     Dosage: 6 ML, SINGLE
     Route: 042
     Dates: start: 20211102, end: 20211102
  2. TYLENOL [Concomitant]
     Active Substance: ACETAMINOPHEN
     Dosage: UNK
  3. BENADRYL [Concomitant]
     Active Substance: DIPHENHYDRAMINE HYDROCHLORIDE
     Dosage: UNK, TIW
  4. HECTOROL [Concomitant]
     Active Substance: DOXERCALCIFEROL
     Dosage: UNK
  5. MONOPRIL [Concomitant]
     Active Substance: FOSINOPRIL SODIUM
  6. GONADOTROPHIN, CHORIONIC [Concomitant]
     Active Substance: GONADOTROPHIN, CHORIONIC
  7. ZOLOFT [Concomitant]
     Active Substance: SERTRALINE HYDROCHLORIDE
  8. NORVASC [Concomitant]
     Active Substance: AMLODIPINE BESYLATE
  9. LIPITOR [Concomitant]
     Active Substance: ATORVASTATIN CALCIUM
  10. COREG [Concomitant]
     Active Substance: CARVEDILOL
     Dosage: UNK
  11. PLAVIX [Concomitant]
     Active Substance: CLOPIDOGREL BISULFATE
     Dosage: UNK

REACTIONS (1)
  - Anaphylactic reaction [Fatal]

NARRATIVE: CASE EVENT DATE: 20211102
